FAERS Safety Report 9948344 (Version 1)
Quarter: 2014Q1

REPORT INFORMATION
  Report Type: Spontaneous
  Country: US (occurrence: None)
  Receive Date: 20140122
  Receipt Date: 20140122
  Transmission Date: 20141002
  Serious: No
  Sender: FDA-Public Use
  Company Number: AP356-00174-SPO-US

PATIENT
  Age: 69 Year
  Sex: Female
  Weight: 74.5 kg

DRUGS (4)
  1. BELVIQ (LORCASERIN HYDROCHLORIDE) [Suspect]
     Indication: WEIGHT DECREASED
     Route: 048
     Dates: start: 20131011
  2. RAMIPRIL (RAMIPRIL) [Concomitant]
  3. METOPROLOL (METOPROLOL) [Concomitant]
  4. CLONIDINE (CLONIDINE) [Concomitant]

REACTIONS (1)
  - Urticaria [None]
